FAERS Safety Report 26027708 (Version 1)
Quarter: 2025Q4

REPORT INFORMATION
  Report Type: Spontaneous
  Country: US (occurrence: US)
  Receive Date: 20251111
  Receipt Date: 20251111
  Transmission Date: 20260117
  Serious: No
  Sender: AIPING PHARMACEUTICAL
  Company Number: US-AIPING-2025AISPO00169

PATIENT
  Age: 82 Year
  Sex: Female
  Weight: 59 kg

DRUGS (4)
  1. FOLIC ACID [Suspect]
     Active Substance: FOLIC ACID
     Indication: Blood disorder prophylaxis
     Route: 048
     Dates: start: 20250925
  2. FOLIC ACID [Suspect]
     Active Substance: FOLIC ACID
     Indication: Blood disorder prophylaxis
  3. LEVOXYL [Concomitant]
     Active Substance: LEVOTHYROXINE SODIUM
     Indication: Product used for unknown indication
     Route: 065
  4. ATORVASTATIN [Concomitant]
     Active Substance: ATORVASTATIN
     Indication: Blood cholesterol
     Route: 065

REACTIONS (11)
  - Abdominal pain upper [Not Recovered/Not Resolved]
  - Dehydration [Not Recovered/Not Resolved]
  - Diarrhoea [Not Recovered/Not Resolved]
  - Dry mouth [Not Recovered/Not Resolved]
  - Dry throat [Not Recovered/Not Resolved]
  - Dyschezia [Not Recovered/Not Resolved]
  - Myalgia [Not Recovered/Not Resolved]
  - Nasal dryness [Not Recovered/Not Resolved]
  - Paraesthesia oral [Not Recovered/Not Resolved]
  - Swollen tongue [Not Recovered/Not Resolved]
  - Product use in unapproved indication [Unknown]

NARRATIVE: CASE EVENT DATE: 20250925
